FAERS Safety Report 20999283 (Version 2)
Quarter: 2023Q4

REPORT INFORMATION
  Report Type: Spontaneous
  Country: FR (occurrence: FR)
  Receive Date: 20220623
  Receipt Date: 20231020
  Transmission Date: 20240110
  Serious: Yes (Life-Threatening, Other)
  Sender: FDA-Public Use
  Company Number: None

PATIENT
  Age: 56 Year
  Sex: Female

DRUGS (7)
  1. ABEMACICLIB [Suspect]
     Active Substance: ABEMACICLIB
     Indication: Breast cancer
     Dosage: 300 MG, DAILY (150 MG X 2/ DAY THEN STOP FOR 7 DAYS)
     Route: 048
     Dates: start: 20220120, end: 20220216
  2. ABEMACICLIB [Suspect]
     Active Substance: ABEMACICLIB
     Dosage: 200 MG, DAILY (100 MG X2/DAY THEN STOP FOR 7 DAYS)
     Route: 048
     Dates: start: 20220223, end: 20220427
  3. ABEMACICLIB [Suspect]
     Active Substance: ABEMACICLIB
     Dosage: 200 MG, DAILY (100MG X2/DAY)
     Route: 048
     Dates: start: 20220504
  4. XARELTO [Suspect]
     Active Substance: RIVAROXABAN
     Indication: Venous thrombosis
     Dosage: 20 MG, DAILY (1 TABLET 20 MG IN THE MORNING AT 1 HOUR INTERVALS WITH ABEMACICLIB)
     Route: 048
     Dates: start: 2020
  5. XGEVA [Suspect]
     Active Substance: DENOSUMAB
     Indication: Metastases to bone
     Dosage: 120 MG, MONTHLY (1/M) (1 INJECTION 1 X/MONTH EVERY 4 WEEKS IF CALCAEMIA } 2.20)
     Route: 058
  6. CALCIUM CARBONATE\CHOLECALCIFEROL [Concomitant]
     Active Substance: CALCIUM CARBONATE\CHOLECALCIFEROL
     Indication: Hypocalcaemia
     Dosage: 500 MG, DAILY (1CP/DAY)
     Route: 065
  7. FULVESTRANT [Concomitant]
     Active Substance: FULVESTRANT
     Indication: Breast cancer
     Dosage: 250 MG, MONTHLY (1/M) (250 MG/5 ML 1 X/MOIS)
     Route: 030
     Dates: start: 20220120

REACTIONS (3)
  - Neutropenia [Recovered/Resolved]
  - Neutropenia [Recovered/Resolved]
  - Neutropenia [Recovered/Resolved]

NARRATIVE: CASE EVENT DATE: 20220216
